FAERS Safety Report 8217206-6 (Version None)
Quarter: 2012Q1

REPORT INFORMATION
  Report Type: 
  Country: None (occurrence: None)
  Receive Date: 20120319
  Receipt Date: 20120309
  Transmission Date: 20120608
  Serious: Yes (Hospitalization)
  Sender: FDA-Public Use
  Company Number: US-AMGEN-USASP2012015663

PATIENT
  Age: 51 Year
  Sex: Female

DRUGS (1)
  1. ENBREL [Suspect]
     Indication: PSORIASIS
     Dosage: 50 MG, 2 TIMES/WK
     Dates: start: 20070501

REACTIONS (10)
  - PARAESTHESIA [None]
  - HYPOAESTHESIA [None]
  - VISION BLURRED [None]
  - GRIP STRENGTH DECREASED [None]
  - GROIN PAIN [None]
  - HERPES ZOSTER [None]
  - BACK PAIN [None]
  - PSORIASIS [None]
  - CEREBROVASCULAR ACCIDENT [None]
  - PAIN IN EXTREMITY [None]
